FAERS Safety Report 9637596 (Version 1)
Quarter: 2013Q4

REPORT INFORMATION
  Report Type: Spontaneous
  Country: NL (occurrence: NL)
  Receive Date: 20131022
  Receipt Date: 20131022
  Transmission Date: 20140711
  Serious: Yes (Life-Threatening, Hospitalization)
  Sender: FDA-Public Use
  Company Number: NL-TEVA-437693ISR

PATIENT
  Age: 59 Year
  Sex: Male

DRUGS (8)
  1. CISPLATINE INFOPL CONC 1MG/ML [Suspect]
     Indication: SMALL CELL LUNG CANCER
     Dosage: SECOND CHEMO COURSE
     Route: 042
     Dates: start: 20130923
  2. PAMIDRONINEZUUR INFOPL CONC 3MG/ML [Interacting]
     Dosage: AFTER CHEMO COURSE
     Route: 042
     Dates: start: 2013
  3. OXYNORM CAPSULE 5MG [Concomitant]
     Dosage: 1-6DD1
     Route: 048
  4. HYDROCHLOORTHIAZIDE TABLET 25MG [Concomitant]
     Dosage: 1DD0.5
     Route: 048
  5. MOVICOLON POEDER VOOR DRANK IN SACHE T [Concomitant]
     Dosage: 2DD1
     Route: 048
  6. OMEPRAZOL CAPSULE MGA 40MG [Concomitant]
     Dosage: 1DD1
     Route: 048
  7. PARACETAMOL [Concomitant]
     Dosage: 4DD2
     Route: 048
  8. OXYCONTIN TABLET MVA 10MG [Concomitant]
     Dosage: 2DD1
     Route: 048

REACTIONS (2)
  - Hypocalcaemia [Recovering/Resolving]
  - Drug interaction [Unknown]
